FAERS Safety Report 25468090 (Version 1)
Quarter: 2025Q2

REPORT INFORMATION
  Report Type: Spontaneous
  Country: US (occurrence: None)
  Receive Date: 20250620
  Receipt Date: 20250620
  Transmission Date: 20250717
  Serious: Yes (Disabling, Other)
  Sender: FDA-CTU
  Company Number: None

PATIENT
  Age: 64 Year
  Sex: Female
  Weight: 60.3 kg

DRUGS (19)
  1. BACLOFEN\DIAZEPAM\KETAMINE [Suspect]
     Active Substance: BACLOFEN\DIAZEPAM\KETAMINE
     Indication: Pelvic floor dysfunction
     Dosage: OTHER QUANTITY : 10 SUPPOSITORY(IES);?FREQUENCY : TWICE A DAY;?
     Route: 067
     Dates: start: 20250612, end: 20250613
  2. AUGMENTIN [Suspect]
     Active Substance: AMOXICILLIN\CLAVULANATE POTASSIUM
  3. LEXAPRO [Concomitant]
     Active Substance: ESCITALOPRAM OXALATE
  4. ESTRADIOL [Concomitant]
     Active Substance: ESTRADIOL
  5. PROGESTERONE [Concomitant]
     Active Substance: PROGESTERONE
  6. GABAPENTIN [Concomitant]
     Active Substance: GABAPENTIN
  7. RELPAX [Concomitant]
     Active Substance: ELETRIPTAN HYDROBROMIDE
  8. ACETAZOLAMIDE [Concomitant]
     Active Substance: ACETAZOLAMIDE
  9. OXYCODONE [Concomitant]
     Active Substance: OXYCODONE
  10. ALPRAZOLAM [Concomitant]
     Active Substance: ALPRAZOLAM
  11. AUGMENTIN [Concomitant]
     Active Substance: AMOXICILLIN\CLAVULANATE POTASSIUM
  12. ZYRTEC [Concomitant]
     Active Substance: CETIRIZINE HYDROCHLORIDE
  13. PEPCID [Concomitant]
     Active Substance: FAMOTIDINE
  14. VITAMINS [Concomitant]
     Active Substance: VITAMINS
  15. DIETARY SUPPLEMENT\HERBALS\MILK THISTLE [Concomitant]
     Active Substance: MILK THISTLE
  16. VITAMINS NOS [Concomitant]
     Active Substance: VITAMINS
  17. QUERCITIN [Concomitant]
  18. MAGNESIUM [Concomitant]
     Active Substance: MAGNESIUM
  19. CALCIUM [Concomitant]
     Active Substance: CALCIUM

REACTIONS (13)
  - Eye pain [None]
  - Headache [None]
  - Infection [None]
  - Hypotension [None]
  - Autonomic nervous system imbalance [None]
  - Gastrointestinal wall thickening [None]
  - Neurotoxicity [None]
  - Nausea [None]
  - Abdominal pain [None]
  - Pelvic pain [None]
  - Insomnia [None]
  - Bradycardia [None]
  - Flank pain [None]

NARRATIVE: CASE EVENT DATE: 20250612
